FAERS Safety Report 6370439-6 (Version None)
Quarter: 2009Q3

REPORT INFORMATION
  Report Type: 
  Country: None (occurrence: None)
  Receive Date: 20090923
  Receipt Date: 20090914
  Transmission Date: 20100115
  Serious: Yes (Other)
  Sender: FDA-Public Use
  Company Number: US-ABBOTT-09P-163-0597545-00

PATIENT
  Sex: Female
  Weight: 53.572 kg

DRUGS (5)
  1. HUMIRA [Suspect]
     Indication: PSORIATIC ARTHROPATHY
  2. HUMIRA [Suspect]
     Dates: start: 20090914
  3. ARTHROTEC [Concomitant]
     Indication: ARTHRITIS
  4. MULTI-VITAMIN [Concomitant]
     Indication: DRUG USE FOR UNKNOWN INDICATION
  5. GRAPE SEED OIL [Concomitant]
     Indication: ARTHROPATHY

REACTIONS (6)
  - IMPAIRED HEALING [None]
  - INFLAMMATION [None]
  - INJECTION SITE HAEMORRHAGE [None]
  - INJECTION SITE PAIN [None]
  - JOINT SWELLING [None]
  - MENISCUS LESION [None]
